FAERS Safety Report 6006763-6 (Version None)
Quarter: 2008Q4

REPORT INFORMATION
  Report Type: 
  Country: None (occurrence: None)
  Receive Date: 20081217
  Receipt Date: 20081210
  Transmission Date: 20090506
  Serious: Yes (Hospitalization)
  Sender: FDA-Public Use
  Company Number: RU-TEVA-182387ISR

PATIENT
  Sex: Female
  Weight: 68 kg

DRUGS (5)
  1. FLUOROURACIL [Suspect]
     Indication: COLORECTAL CANCER
     Dosage: 2975MG(240MG/M^2, EVERY TWO WEEKS)
     Route: 042
     Dates: start: 20080730
  2. FLUOROURACIL [Suspect]
     Route: 042
  3. FOLINIC ACID [Suspect]
     Indication: COLORECTAL CANCER
     Dosage: 425MG (240MG, EVERY TWO WEEKS)
     Route: 042
     Dates: start: 20080730
  4. IRINOTECAN HYDROCHLORIDE [Suspect]
     Indication: COLORECTAL CANCER
     Dosage: 190MG (108MG/M^2 EVERY TWO WEEKS)
     Route: 042
     Dates: start: 20080730
  5. BLINDED THERAPY [Suspect]
     Indication: COLORECTAL CANCER
     Route: 048
     Dates: start: 20080730

REACTIONS (1)
  - PANCREATITIS ACUTE [None]
